FAERS Safety Report 6274759-5 (Version None)
Quarter: 2009Q3

REPORT INFORMATION
  Report Type: 
  Country: None (occurrence: None)
  Receive Date: 20090721
  Receipt Date: 20090710
  Transmission Date: 20100115
  Serious: Yes (Hospitalization)
  Sender: FDA-Public Use
  Company Number: CA-JNJFOC-20090703687

PATIENT
  Age: 42 Year
  Sex: Female
  Weight: 51.7 kg

DRUGS (1)
  1. REMICADE [Suspect]
     Indication: CROHN'S DISEASE
     Dosage: DOSE ^3 VIALS;^ 14 INFUSIONS TO PRESENT
     Route: 042

REACTIONS (1)
  - MENTAL DISORDER [None]
